FAERS Safety Report 7547526-X (Version None)
Quarter: 2011Q2

REPORT INFORMATION
  Report Type: 
  Country: None (occurrence: None)
  Receive Date: 20110614
  Receipt Date: 20110608
  Transmission Date: 20111010
  Serious: No
  Sender: FDA-Public Use
  Company Number: US-PFIZER INC-2011125398

PATIENT
  Sex: Male
  Weight: 86.621 kg

DRUGS (5)
  1. VIAGRA [Suspect]
     Dosage: UNK
     Route: 048
     Dates: start: 20100301
  2. VIAGRA [Suspect]
     Indication: ERECTILE DYSFUNCTION
     Dosage: 100 MG, AS NEEDED
     Route: 048
     Dates: start: 20000101
  3. VIAGRA [Suspect]
     Dosage: QUARTER OF 100 MG TABLET
     Dates: start: 20010101
  4. VIAGRA [Suspect]
     Dosage: UNK
  5. VIAGRA [Suspect]
     Dosage: HALF OF 100 MG TABLET
     Dates: start: 20010101

REACTIONS (1)
  - DRUG INEFFECTIVE [None]
